FAERS Safety Report 16103992 (Version 1)
Quarter: 2019Q1

REPORT INFORMATION
  Report Type: Spontaneous
  Country: GB (occurrence: GB)
  Receive Date: 20190322
  Receipt Date: 20190322
  Transmission Date: 20190418
  Serious: Yes (Other)
  Sender: FDA-Public Use
  Company Number: GB-AUROBINDO-AUR-APL-2019-013600

PATIENT

DRUGS (5)
  1. FLUOXETINE [Suspect]
     Active Substance: FLUOXETINE HYDROCHLORIDE
     Indication: DEPRESSION
     Dosage: 20 MILLIGRAM, ONCE A DAY
     Route: 048
  2. LORATADINE. [Interacting]
     Active Substance: LORATADINE
     Indication: EYE PRURITUS
     Dosage: 10 MILLIGRAM, THE PATIENT RESUMED LORATADINE ABOUT 5 WEEKS AGO.
     Route: 065
     Dates: start: 20190222
  3. AVAMYS [Concomitant]
     Active Substance: FLUTICASONE FUROATE
     Indication: EUSTACHIAN TUBE DYSFUNCTION
     Dosage: UNK
     Route: 065
     Dates: start: 20190222
  4. LORATADINE. [Interacting]
     Active Substance: LORATADINE
     Indication: LACRIMATION INCREASED
  5. PROZAC [Suspect]
     Active Substance: FLUOXETINE HYDROCHLORIDE
     Indication: DEPRESSION
     Dosage: UNK
     Route: 065

REACTIONS (5)
  - Muscle spasms [Recovered/Resolved]
  - Seizure [Recovered/Resolved]
  - Drug interaction [Unknown]
  - Sleep disorder [Unknown]
  - Epilepsy [Recovered/Resolved]

NARRATIVE: CASE EVENT DATE: 20190202
